FAERS Safety Report 15267026 (Version 8)
Quarter: 2025Q3

REPORT INFORMATION
  Report Type: Spontaneous
  Country: EU (occurrence: EU)
  Receive Date: 20180810
  Receipt Date: 20250711
  Transmission Date: 20251021
  Serious: Yes (Death, Life-Threatening, Other)
  Sender: NOVARTIS
  Company Number: PHHY2018FR069118

PATIENT
  Age: 26 Year
  Sex: Female
  Weight: 97 kg

DRUGS (18)
  1. CYCLOSPORINE [Suspect]
     Active Substance: CYCLOSPORINE
     Indication: Prophylaxis against graft versus host disease
     Route: 065
  2. CYCLOSPORINE [Suspect]
     Active Substance: CYCLOSPORINE
     Dosage: 3 MG/KG, QD (TARGET 200 TO 300 NG/L, FROM DAY 5 (24 HOURS AFTER LAST DOSE OF CYCLOPHOSPHAMIDE), DECR
     Route: 042
     Dates: start: 20180605
  3. CYCLOPHOSPHAMIDE [Suspect]
     Active Substance: CYCLOPHOSPHAMIDE
     Indication: Prophylaxis against graft versus host disease
     Dosage: 4400 MG, QD (CYCLE 1 DAY 3, 50 MG/KG, ENDOXAN 4400 MG + 5% SODIUM CHLORIDE 500 ML)
     Route: 041
  4. CYCLOPHOSPHAMIDE [Suspect]
     Active Substance: CYCLOPHOSPHAMIDE
     Route: 042
  5. FLUDARABINE [Suspect]
     Active Substance: FLUDARABINE PHOSPHATE
     Indication: Stem cell transplant
     Dosage: 78 MG, QD (CONDITIONING REGIMEN; DAY 5, 4, 3 AND 2; 40 MG/M2; FLUDARABINE 78 MG + 0.9% SODIUM CHLORI
     Route: 042
     Dates: start: 20180526, end: 20180529
  6. THIOTEPA [Suspect]
     Active Substance: THIOTEPA
     Indication: Stem cell transplant
     Dosage: 440 MG, QD (CONDITIONING REGIMEN; DAY 7 AND 6; 5 MG/KG; THIOTEPA 440 MG + 0.9% SODIUM CHLORIDE 500 M
     Route: 042
     Dates: start: 20180524, end: 20180525
  7. THIOTEPA [Suspect]
     Active Substance: THIOTEPA
     Route: 042
     Dates: start: 20180524, end: 20180525
  8. CELLCEPT [Suspect]
     Active Substance: MYCOPHENOLATE MOFETIL
     Indication: Prophylaxis against graft versus host disease
     Dosage: 45 MG/KG, QD (FROM DAY 5 (24 HOURS AFTER LAST DOSE OF CYCLOPHOSPHAMIDE) UNTIL DAY 35, MAX: 1G, TID)
     Route: 042
     Dates: start: 20180605
  9. BUSULFAN [Suspect]
     Active Substance: BUSULFAN
     Indication: Stem cell transplant
     Dosage: 281.5 MG, QD (CONDITIONING REGIMEN; DAY 5, 4 AND 3; 3.2 MG/KG, BUSILVEX 281.5 MG + 0.9% SODIUM CHLOR
     Route: 042
     Dates: start: 20180526, end: 20180528
  10. BUSULFAN [Suspect]
     Active Substance: BUSULFAN
     Route: 042
  11. MESNA [Suspect]
     Active Substance: MESNA
     Indication: Product used for unknown indication
     Route: 041
     Dates: start: 20180605, end: 20180605
  12. URSODIOL [Suspect]
     Active Substance: URSODIOL
     Indication: Prophylaxis against graft versus host disease
     Route: 065
  13. SODIUM CHLORIDE [Suspect]
     Active Substance: SODIUM CHLORIDE
     Indication: Medication dilution
     Dosage: 500 ML, QD (CONDITIONING REGIMEN; DAY 7 AND 6; THIOTEPA 440 MG + 0.9% SODIUM CHLORIDE 500 ML )
     Route: 041
     Dates: start: 20180524, end: 20180525
  14. SODIUM CHLORIDE [Suspect]
     Active Substance: SODIUM CHLORIDE
     Dosage: 563 ML, QD (CONDITIONING REGIMEN; DAY 5, 4 AND 3; BUSILVEX 281.5 MG + 0.9% SODIUM CHLORIDE 563 ML)
     Route: 041
     Dates: start: 20180526, end: 20180528
  15. SODIUM CHLORIDE [Suspect]
     Active Substance: SODIUM CHLORIDE
     Dosage: 100 ML, QD (CONDITIONING REGIMEN; DAY 5, 4, 3 AND 2; FLUDARABINE 78 MG + 0.9% SODIUM CHLORIDE 100 ML
     Route: 041
     Dates: start: 20180526, end: 20180529
  16. SODIUM CHLORIDE [Suspect]
     Active Substance: SODIUM CHLORIDE
     Dosage: 500 ML, QD (CYCLE 1 DAY 3, ENDOXAN 4400 MG + 5% SODIUM CHLORIDE 500 ML)
     Route: 041
     Dates: start: 20180603, end: 20180604
  17. GRANULOCYTE COLONY-STIMULATING FACTOR NOS [Concomitant]
     Active Substance: GRANULOCYTE COLONY-STIMULATING FACTOR NOS
     Indication: Prophylaxis
     Route: 065
  18. AMIKACIN SULFATE [Concomitant]
     Active Substance: AMIKACIN SULFATE
     Indication: Product used for unknown indication
     Route: 065
     Dates: start: 20180812

REACTIONS (22)
  - Myocarditis [Fatal]
  - Myopericarditis [Fatal]
  - Dyspnoea [Fatal]
  - Sepsis [Fatal]
  - Hepatomegaly [Fatal]
  - Pneumothorax [Fatal]
  - Renal failure [Fatal]
  - Febrile bone marrow aplasia [Fatal]
  - Pyelonephritis [Fatal]
  - Cardiogenic shock [Fatal]
  - Urinary tract infection [Fatal]
  - Pelvic fluid collection [Fatal]
  - Atelectasis [Fatal]
  - Disease recurrence [Fatal]
  - Peritonitis [Fatal]
  - Pericardial effusion [Fatal]
  - Pneumonia staphylococcal [Fatal]
  - Mucosal inflammation [Fatal]
  - Candida infection [Fatal]
  - Nausea [Fatal]
  - Diplopia [Fatal]
  - Weight increased [Fatal]

NARRATIVE: CASE EVENT DATE: 20180601
